FAERS Safety Report 9783784 (Version 1)
Quarter: 2013Q4

REPORT INFORMATION
  Report Type: Spontaneous
  Country: US (occurrence: US)
  Receive Date: 20131226
  Receipt Date: 20131226
  Transmission Date: 20140711
  Serious: No
  Sender: FDA-Public Use
  Company Number: US-PFIZER INC-2013366492

PATIENT
  Age: 53 Year
  Sex: Female
  Weight: 62.59 kg

DRUGS (2)
  1. ADVIL [Suspect]
     Indication: PAIN
     Dosage: TWO CAPSULES DAILY
     Route: 048
     Dates: end: 20131214
  2. ADVIL [Suspect]
     Indication: HEADACHE

REACTIONS (6)
  - Headache [Unknown]
  - Pain [Unknown]
  - Epistaxis [Recovered/Resolved]
  - Arthralgia [Recovered/Resolved]
  - Abdominal pain upper [Recovered/Resolved]
  - Skin reaction [Recovered/Resolved]
